FAERS Safety Report 4892439-5 (Version None)
Quarter: 2006Q1

REPORT INFORMATION
  Report Type: 
  Country: None (occurrence: None)
  Receive Date: 20060126
  Receipt Date: 20051006
  Transmission Date: 20060701
  Serious: Yes (Death)
  Sender: FDA-Public Use
  Company Number: US-MERCK-0510USA05609

PATIENT
  Age: 63 Year
  Sex: Male
  Weight: 70 kg

DRUGS (6)
  1. VIOXX [Suspect]
     Indication: PAIN IN EXTREMITY
     Route: 048
  2. TYLENOL (CAPLET) [Concomitant]
     Route: 065
  3. [THERAPY UNSPECIFIED] [Concomitant]
     Indication: HYPERTENSION
     Route: 065
  4. [THERAPY UNSPECIFIED] [Concomitant]
     Indication: DIABETES MELLITUS
     Route: 065
  5. [THERAPY UNSPECIFIED] [Concomitant]
     Indication: CARDIAC DISORDER
     Route: 065
  6. BLOOD THINNER (UNSPECIFIED) [Concomitant]
     Route: 065

REACTIONS (2)
  - CARDIOVASCULAR DISORDER [None]
  - DEATH [None]
